FAERS Safety Report 5121360-2 (Version None)
Quarter: 2006Q4

REPORT INFORMATION
  Report Type: 
  Country: None (occurrence: None)
  Receive Date: 20061002
  Receipt Date: 20060913
  Transmission Date: 20070319
  Serious: Yes (Hospitalization)
  Sender: FDA-Public Use
  Company Number: US200609002858

PATIENT
  Age: 29 Year
  Sex: Male

DRUGS (5)
  1. STRATTERA [Suspect]
     Dosage: SEE IMAGE
  2. PROVIGIL [Concomitant]
  3. NALTREXONE (NALTREXONE) [Concomitant]
  4. ANTABUSE [Concomitant]
  5. SEROQUEL [Concomitant]

REACTIONS (5)
  - DYSARTHRIA [None]
  - OVERDOSE [None]
  - PRESCRIBED OVERDOSE [None]
  - SELF-MEDICATION [None]
  - SOMNOLENCE [None]
